FAERS Safety Report 6192927-8 (Version None)
Quarter: 2009Q2

REPORT INFORMATION
  Report Type: 
  Country: None (occurrence: None)
  Receive Date: 20090518
  Receipt Date: 20090511
  Transmission Date: 20091009
  Serious: Yes (Life-Threatening, Hospitalization)
  Sender: FDA-Public Use
  Company Number: HR-AVENTIS-200914002GDDC

PATIENT
  Age: 65 Year
  Sex: Female

DRUGS (7)
  1. INSULIN GLARGINE [Suspect]
     Route: 058
     Dates: start: 20041117
  2. OPTIPEN (INSULIN PUMP) [Suspect]
  3. CODE UNBROKEN [Suspect]
     Route: 048
     Dates: start: 20041117
  4. LACIDIPIN [Concomitant]
     Dosage: DOSE QUANTITY: 8
     Dates: start: 20080901
  5. URAPIDIL [Concomitant]
     Dosage: DOSE QUANTITY: 180
     Dates: start: 20081101
  6. INDAPAMID [Concomitant]
     Dosage: DOSE QUANTITY: 1.5
     Dates: start: 20080901
  7. UNKNOWN DRUG [Concomitant]
     Indication: TYPE 2 DIABETES MELLITUS
     Dosage: DOSE QUANTITY: 15
     Dates: start: 20070901

REACTIONS (1)
  - ADRENAL ADENOMA [None]
